FAERS Safety Report 8231986 (Version 3)
Quarter: 2013Q3

REPORT INFORMATION
  Report Type: Spontaneous
  Country: US (occurrence: US)
  Receive Date: 20111107
  Receipt Date: 20130715
  Transmission Date: 20140515
  Serious: No
  Sender: FDA-Public Use
  Company Number: US-BIOGENIDEC-2009BI037372

PATIENT
  Age: 53 Year
  Sex: Female

DRUGS (4)
  1. TYSABRI [Suspect]
     Indication: MULTIPLE SCLEROSIS
     Route: 042
  2. TYSABRI [Suspect]
     Indication: MULTIPLE SCLEROSIS
     Route: 042
     Dates: start: 20071126
  3. AVONEX [Concomitant]
     Indication: MULTIPLE SCLEROSIS
     Route: 030
     Dates: start: 19961201
  4. AVONEX [Concomitant]
     Indication: MULTIPLE SCLEROSIS
     Route: 030
     Dates: start: 1997

REACTIONS (18)
  - Balance disorder [Recovered/Resolved]
  - Vein disorder [Not Recovered/Not Resolved]
  - Pain [Recovered/Resolved]
  - Memory impairment [Not Recovered/Not Resolved]
  - Aphasia [Not Recovered/Not Resolved]
  - Gait disturbance [Not Recovered/Not Resolved]
  - Muscular weakness [Not Recovered/Not Resolved]
  - Fall [Recovered/Resolved]
  - Hypoaesthesia [Recovered/Resolved]
  - Amnesia [Not Recovered/Not Resolved]
  - Poor venous access [Unknown]
  - Pain in extremity [Recovered/Resolved]
  - Arthralgia [Recovered/Resolved]
  - Drug effect decreased [Recovered/Resolved]
  - Headache [Recovered/Resolved]
  - Fatigue [Recovered/Resolved]
  - Upper respiratory tract infection [Recovered/Resolved]
  - Drug specific antibody present [Unknown]
